FAERS Safety Report 6610540-2 (Version None)
Quarter: 2010Q1

REPORT INFORMATION
  Report Type: 
  Country: None (occurrence: None)
  Receive Date: 20100302
  Receipt Date: 20100226
  Transmission Date: 20100710
  Serious: Yes (Other)
  Sender: FDA-Public Use
  Company Number: A0846999A

PATIENT
  Age: 48 Year
  Sex: Female

DRUGS (2)
  1. NICODERM CQ [Suspect]
     Indication: SMOKING CESSATION THERAPY
     Route: 062
     Dates: start: 20100224, end: 20100225
  2. BACTRIM [Concomitant]

REACTIONS (7)
  - DIZZINESS [None]
  - EYE SWELLING [None]
  - HEADACHE [None]
  - LOSS OF CONSCIOUSNESS [None]
  - POOR QUALITY SLEEP [None]
  - PRURITUS GENERALISED [None]
  - URTICARIA [None]
